FAERS Safety Report 15223576 (Version 1)
Quarter: 2018Q3

REPORT INFORMATION
  Report Type: Spontaneous
  Country: US (occurrence: US)
  Receive Date: 20180705
  Receipt Date: 20180705
  Transmission Date: 20181010
  Serious: Yes (Hospitalization)
  Sender: FDA-Public Use
  Company Number: None

PATIENT
  Sex: Female

DRUGS (19)
  1. HYDROCHLOROT [Suspect]
     Active Substance: HYDROCHLOROTHIAZIDE
  2. XELJANZ XR [Suspect]
     Active Substance: TOFACITINIB CITRATE
     Indication: RHEUMATOID ARTHRITIS
     Route: 048
     Dates: start: 20170802
  3. METOCLOPRAM [Concomitant]
     Active Substance: METOCLOPRAMIDE
  4. ARAVA [Concomitant]
     Active Substance: LEFLUNOMIDE
  5. GABAPENTIN. [Concomitant]
     Active Substance: GABAPENTIN
  6. PROVENTIL [Concomitant]
     Active Substance: ALBUTEROL
  7. ALLEGRA [Concomitant]
     Active Substance: FEXOFENADINE HYDROCHLORIDE
  8. NORCO [Concomitant]
     Active Substance: ACETAMINOPHEN\HYDROCODONE BITARTRATE
  9. ZALEPLON. [Concomitant]
     Active Substance: ZALEPLON
  10. MICROZIDE [Concomitant]
     Active Substance: HYDROCHLOROTHIAZIDE
  11. PHENTERMINE. [Concomitant]
     Active Substance: PHENTERMINE
  12. VESICARE [Concomitant]
     Active Substance: SOLIFENACIN SUCCINATE
  13. VITAMIN C [Concomitant]
     Active Substance: ASCORBIC ACID
  14. CYCLOBENZAPR [Concomitant]
     Active Substance: CYCLOBENZAPRINE
  15. POTASSIUM [Concomitant]
     Active Substance: POTASSIUM
  16. MOBIC [Suspect]
     Active Substance: MELOXICAM
  17. MELOXICAM. [Concomitant]
     Active Substance: MELOXICAM
  18. DEXILANT [Concomitant]
     Active Substance: DEXLANSOPRAZOLE
  19. LOSARTAN POT [Concomitant]
     Active Substance: LOSARTAN POTASSIUM

REACTIONS (4)
  - Pain [None]
  - Drug dose omission [None]
  - Pain in extremity [None]
  - Surgery [None]
